FAERS Safety Report 6924496-6 (Version None)
Quarter: 2010Q3

REPORT INFORMATION
  Report Type: 
  Country: None (occurrence: None)
  Receive Date: 20100816
  Receipt Date: 20100805
  Transmission Date: 20110219
  Serious: Yes (Hospitalization)
  Sender: FDA-Public Use
  Company Number: DE-BIOGENIDEC-2010BI008027

PATIENT
  Age: 52 Year
  Sex: Female

DRUGS (4)
  1. TYSABRI [Suspect]
     Indication: MULTIPLE SCLEROSIS
     Route: 042
     Dates: start: 20090306
  2. GABAPENTIN [Concomitant]
     Indication: MUSCLE SPASTICITY
     Dates: start: 20090310
  3. GABAPENTIN [Concomitant]
     Indication: PAIN
     Dates: start: 20090310
  4. OXCARBAZEPINE [Concomitant]
     Indication: PAIN
     Dates: start: 20090421

REACTIONS (1)
  - UTERINE LEIOMYOMA [None]
